FAERS Safety Report 8762014 (Version 3)
Quarter: 2012Q4

REPORT INFORMATION
  Report Type: 
  Country: US (occurrence: US)
  Receive Date: 20120829
  Receipt Date: 20121121
  Transmission Date: 20130627
  Serious: Yes (Death, Hospitalization)
  Sender: FDA-Public Use
  Company Number: US-PFIZER INC-2012210133

PATIENT
  Age: 84 Year
  Sex: Male

DRUGS (3)
  1. LIPITOR [Suspect]
     Indication: HIGH CHOLESTEROL
     Dosage: 80 mg,daily
     Route: 048
     Dates: start: 2007
  2. REVATIO [Suspect]
     Dosage: 20 mg, 3x/day
     Route: 048
     Dates: start: 20111209
  3. ALLOPURINOL [Concomitant]
     Indication: KIDNEY STONES
     Dosage: 300 mg, daily

REACTIONS (2)
  - Sepsis [Fatal]
  - Intestinal perforation [Fatal]
